FAERS Safety Report 4353249-0 (Version None)
Quarter: 2004Q2

REPORT INFORMATION
  Report Type: 
  Country: None (occurrence: None)
  Receive Date: 20040429
  Receipt Date: 20040107
  Transmission Date: 20050107
  Serious: Yes (Other)
  Sender: FDA-Public Use
  Company Number: REL-DCR-113

PATIENT
  Age: 83 Year
  Sex: Male

DRUGS (1)
  1. DYNACIRC CR [Suspect]
     Dosage: ORAL
     Route: 048

REACTIONS (1)
  - CUTANEOUS LUPUS ERYTHEMATOSUS [None]
